FAERS Safety Report 9954102 (Version 1)
Quarter: 2014Q1

REPORT INFORMATION
  Report Type: Report from Study
  Country: US (occurrence: US)
  Receive Date: 20140304
  Receipt Date: 20140304
  Transmission Date: 20141002
  Serious: No
  Sender: FDA-Public Use
  Company Number: US-ABBVIE-13P-163-1078011-00

PATIENT
  Age: 46 Year
  Sex: Female
  Weight: 86.26 kg

DRUGS (5)
  1. HUMIRA [Suspect]
     Indication: RHEUMATOID ARTHRITIS
     Dates: start: 20130317
  2. SEASONIQUE [Concomitant]
     Indication: CONTRACEPTION
  3. PRILOSEC [Concomitant]
     Indication: DYSPEPSIA
     Dates: start: 20130315
  4. UNKNOWN ANTIDEPRESSANT [Concomitant]
     Indication: DEPRESSION
  5. UNKNOWN MEDICATION [Concomitant]
     Indication: RHEUMATOID ARTHRITIS

REACTIONS (6)
  - Injection site discolouration [Not Recovered/Not Resolved]
  - Injection site erythema [Not Recovered/Not Resolved]
  - Injection site erythema [Recovered/Resolved]
  - Injection site pruritus [Recovered/Resolved]
  - Injection site bruising [Recovered/Resolved]
  - Injection site erythema [Not Recovered/Not Resolved]
